FAERS Safety Report 7721229-0 (Version None)
Quarter: 2011Q3

REPORT INFORMATION
  Report Type: 
  Country: None (occurrence: None)
  Receive Date: 20110831
  Receipt Date: 20110824
  Transmission Date: 20111222
  Serious: Yes (Death, Hospitalization)
  Sender: FDA-Public Use
  Company Number: JP-BAYER-200914404BYL

PATIENT
  Age: 76 Year
  Sex: Female

DRUGS (8)
  1. NEXAVAR [Suspect]
     Indication: HEPATIC NEOPLASM MALIGNANT
     Route: 048
     Dates: start: 20091102, end: 20091111
  2. NEXAVAR [Suspect]
     Route: 048
     Dates: start: 20091112, end: 20091116
  3. URSO 250 [Concomitant]
     Dosage: 600 MG (DAILY DOSE), , ORAL
     Route: 048
  4. ASPARA K [Concomitant]
     Dosage: 9 DF (DAILY DOSE), , ORAL
     Route: 048
  5. LASIX [Concomitant]
     Dosage: 30 MG (DAILY DOSE), , ORAL
     Route: 048
  6. LIVACT [Concomitant]
     Dosage: 3 DF (DAILY DOSE), , ORAL
     Route: 048
  7. ZOPICOOL [Concomitant]
     Dosage: 7.5 MG (DAILY DOSE), , ORAL
     Route: 048
  8. RABEPRAZOLE SODIUM [Concomitant]
     Dosage: 10 MG (DAILY DOSE), , ORAL
     Route: 048

REACTIONS (4)
  - HEPATIC ENCEPHALOPATHY [None]
  - STOMATITIS [None]
  - HEPATIC NEOPLASM MALIGNANT [None]
  - PALMAR-PLANTAR ERYTHRODYSAESTHESIA SYNDROME [None]
